FAERS Safety Report 17001036 (Version 1)
Quarter: 2019Q4

REPORT INFORMATION
  Report Type: Spontaneous
  Country: GB (occurrence: GB)
  Receive Date: 20191106
  Receipt Date: 20191106
  Transmission Date: 20200122
  Serious: Yes (Other)
  Sender: FDA-Public Use
  Company Number: GB-TEVA-2019-GB-1131323

PATIENT
  Age: 5 Year
  Sex: Female
  Weight: 25 kg

DRUGS (4)
  1. MACROGOL [Concomitant]
     Active Substance: POLYETHYLENE GLYCOLS
     Dosage: 1-2 SACHET A DAY
     Dates: start: 20160802
  2. CHLORAMPHENICOL [Suspect]
     Active Substance: CHLORAMPHENICOL
     Dosage: 10ML
     Route: 047
     Dates: start: 20191004
  3. LACTULOSE. [Concomitant]
     Active Substance: LACTULOSE
     Dosage: 10 ML
     Dates: start: 20160802
  4. CHLORPHENAMINE [Concomitant]
     Active Substance: CHLORPHENIRAMINE MALEATE
     Dates: start: 20191004

REACTIONS (2)
  - Swelling of eyelid [Unknown]
  - Eye haemorrhage [Unknown]

NARRATIVE: CASE EVENT DATE: 20191009
